FAERS Safety Report 23032008 (Version 2)
Quarter: 2023Q4

REPORT INFORMATION
  Report Type: Spontaneous
  Country: US (occurrence: US)
  Receive Date: 20231005
  Receipt Date: 20231101
  Transmission Date: 20240110
  Serious: No
  Sender: FDA-Public Use
  Company Number: US-BAYER-2023A126234

PATIENT
  Age: 11 Year
  Sex: Male

DRUGS (1)
  1. KOVALTRY [Suspect]
     Active Substance: ANTIHEMOPHILIC FACTOR, HUMAN RECOMBINANT
     Dosage: 2000 UNITS

REACTIONS (3)
  - Fall [None]
  - Neck pain [None]
  - Chest pain [None]

NARRATIVE: CASE EVENT DATE: 20230905
